FAERS Safety Report 4796326-2 (Version None)
Quarter: 2005Q4

REPORT INFORMATION
  Report Type: 
  Country: None (occurrence: None)
  Receive Date: 20051007
  Receipt Date: 20050927
  Transmission Date: 20060501
  Serious: Yes (Hospitalization, Other)
  Sender: FDA-Public Use
  Company Number: 200513344GDS

PATIENT
  Age: 62 Year
  Sex: Female

DRUGS (4)
  1. ASPIRIN [Suspect]
     Dosage: ORAL
     Route: 048
  2. INTEGRILIN [Suspect]
     Dosage: 20 MG,  TOTAL DAILY, INTRAVENOUS
     Route: 042
  3. ANGIOMAX [Suspect]
     Dosage: 250 MG, TOTAL , DAILY, INTRAVENOUS
     Route: 042
  4. PLAVIX [Suspect]

REACTIONS (9)
  - CHEST PAIN [None]
  - CORONARY ARTERY DISEASE [None]
  - DYSPNOEA [None]
  - FATIGUE [None]
  - HAEMOPTYSIS [None]
  - HAEMOTHORAX [None]
  - HYPOTENSION [None]
  - LUNG NEOPLASM [None]
  - NAUSEA [None]
